FAERS Safety Report 8544024-1 (Version None)
Quarter: 2012Q3

REPORT INFORMATION
  Report Type: 
  Country: None (occurrence: None)
  Receive Date: 20120727
  Receipt Date: 20120720
  Transmission Date: 20120928
  Serious: Yes (Death, Other)
  Sender: FDA-Public Use
  Company Number: US-PFIZER INC-2012124385

PATIENT
  Sex: Male

DRUGS (1)
  1. ZITHROMAX [Suspect]
     Dosage: 2 PILLS
     Dates: start: 20120404

REACTIONS (1)
  - MYOCARDIAL INFARCTION [None]
